FAERS Safety Report 7264493-7 (Version None)
Quarter: 2011Q1

REPORT INFORMATION
  Report Type: 
  Country: None (occurrence: None)
  Receive Date: 20110131
  Receipt Date: 20110124
  Transmission Date: 20110831
  Serious: Yes (Other)
  Sender: FDA-Public Use
  Company Number: US-PFIZER INC-2011017335

PATIENT

DRUGS (2)
  1. ZOLOFT [Suspect]
  2. EFFEXOR XR [Suspect]

REACTIONS (1)
  - PANCREATITIS [None]
